FAERS Safety Report 12742924 (Version 1)
Quarter: 2016Q3

REPORT INFORMATION
  Report Type: Spontaneous
  Country: US (occurrence: US)
  Receive Date: 20160914
  Receipt Date: 20160914
  Transmission Date: 20161109
  Serious: No
  Sender: FDA-Public Use
  Company Number: US-SIGMA-TAU US-2015STPI000505

PATIENT

DRUGS (4)
  1. KEPPRA [Concomitant]
     Active Substance: LEVETIRACETAM
     Dosage: 25 UNK, UNK
  2. LOMUSTINE. [Concomitant]
     Active Substance: LOMUSTINE
     Dosage: 10 MG, UNK
  3. MATULANE [Suspect]
     Active Substance: PROCARBAZINE HYDROCHLORIDE
     Indication: BRAIN NEOPLASM MALIGNANT
     Dosage: 50 MG, 31 CAPSULES OVER 14 DAYS AS DIRECTED
     Route: 048
     Dates: start: 20150119
  4. GLEOSTINE [Concomitant]
     Active Substance: LOMUSTINE
     Dosage: 40 MG, UNK

REACTIONS (1)
  - Blood count abnormal [Unknown]

NARRATIVE: CASE EVENT DATE: 20150629
